FAERS Safety Report 6224176-9 (Version None)
Quarter: 2009Q2

REPORT INFORMATION
  Report Type: 
  Country: None (occurrence: None)
  Receive Date: 20090612
  Receipt Date: 20090311
  Transmission Date: 20091009
  Serious: No
  Sender: FDA-Public Use
  Company Number: US-ABBOTT-09P-163-0561921-00

PATIENT
  Sex: Female
  Weight: 76.272 kg

DRUGS (10)
  1. HUMIRA [Suspect]
     Indication: RHEUMATOID ARTHRITIS
     Route: 058
     Dates: start: 20070901
  2. PREMARIN [Concomitant]
     Indication: HORMONE REPLACEMENT THERAPY
     Route: 048
  3. DOXEPIN HCL [Concomitant]
     Indication: DEPRESSION
     Route: 048
  4. METHOTREXATE [Concomitant]
     Indication: RHEUMATOID ARTHRITIS
     Route: 048
  5. PRIMIDONE [Concomitant]
     Indication: MIGRAINE
     Route: 048
  6. DILANTIN [Concomitant]
     Indication: MIGRAINE
     Route: 048
  7. MOBIC [Concomitant]
     Indication: RHEUMATOID ARTHRITIS
     Route: 048
  8. MOBIC [Concomitant]
     Indication: FIBROMYALGIA
  9. AMBIEN [Concomitant]
     Indication: INSOMNIA
     Route: 048
  10. MAXALT [Concomitant]
     Indication: MIGRAINE
     Route: 048

REACTIONS (1)
  - CYSTITIS [None]
